FAERS Safety Report 5789414-5 (Version None)
Quarter: 2008Q2

REPORT INFORMATION
  Report Type: 
  Country: None (occurrence: None)
  Receive Date: 20080624
  Receipt Date: 20080609
  Transmission Date: 20081010
  Serious: Yes (Other)
  Sender: FDA-Public Use
  Company Number: FR-1166371

PATIENT
  Sex: Male

DRUGS (2)
  1. AZOPT [Suspect]
     Dosage: BID
     Route: 047
  2. TRAVATAN [Suspect]
     Dosage: QD
     Route: 047

REACTIONS (2)
  - BRONCHOSPASM [None]
  - RESPIRATORY DISTRESS [None]
